FAERS Safety Report 8654380 (Version 1)
Quarter: 2012Q4

REPORT INFORMATION
  Report Type: 
  Country: US (occurrence: US)
  Receive Date: 20120905
  Receipt Date: 20120905
  Transmission Date: 20130627
  Serious: No
  Sender: FDA-Public Use
  Company Number: US-ASTRAZENECA-2012SE42306

PATIENT
  Age: 12 Year
  Sex: Male
  Weight: 53.5 kg

DRUGS (3)
  1. SEROQUEL [Suspect]
     Indication: BIPOLAR DISORDER
     Route: 048
     Dates: end: 201204
  2. SEROQUEL [Suspect]
     Indication: BIPOLAR DISORDER
     Route: 048
     Dates: start: 201204
  3. ZERTEC [Concomitant]
     Indication: HYPERSENSITIVITY

REACTIONS (2)
  - Mucosal dryness [Unknown]
  - Dry mouth [Unknown]
